FAERS Safety Report 9009199 (Version 1)
Quarter: 2013Q1

REPORT INFORMATION
  Report Type: Spontaneous
  Country: CA (occurrence: CA)
  Receive Date: 20130111
  Receipt Date: 20130111
  Transmission Date: 20140127
  Serious: Yes (Death, Hospitalization, Other)
  Sender: FDA-Public Use
  Company Number: CA-CELGENEUS-028-50794-13010604

PATIENT
  Age: 68 Year
  Sex: Female

DRUGS (1)
  1. VIDAZA [Suspect]
     Indication: MYELODYSPLASTIC SYNDROME
     Route: 058
     Dates: start: 201004

REACTIONS (8)
  - Death [Fatal]
  - Injection site haematoma [Unknown]
  - Injection site cellulitis [Unknown]
  - Herpes zoster [Unknown]
  - Pneumonia [Unknown]
  - Haemoglobin decreased [Unknown]
  - Platelet count decreased [Unknown]
  - Acute myeloid leukaemia [Unknown]
